FAERS Safety Report 18270224 (Version 5)
Quarter: 2020Q4

REPORT INFORMATION
  Report Type: Spontaneous
  Country: US (occurrence: US)
  Receive Date: 20200915
  Receipt Date: 20201110
  Transmission Date: 20210113
  Serious: Yes (Other)
  Sender: FDA-Public Use
  Company Number: US-SA-2020SA237546

PATIENT

DRUGS (5)
  1. TOUJEO [Suspect]
     Active Substance: INSULIN GLARGINE
     Dosage: 39 UNITS ONCE DAILY
     Route: 065
  2. METFORMIN [Concomitant]
     Active Substance: METFORMIN HYDROCHLORIDE
     Dosage: UNK
     Route: 065
  3. TOUJEO [Suspect]
     Active Substance: INSULIN GLARGINE
     Indication: TYPE 2 DIABETES MELLITUS
     Dosage: 30 UNITS ONCE DAILY
     Route: 065
     Dates: start: 202007, end: 2020
  4. TOUJEO [Suspect]
     Active Substance: INSULIN GLARGINE
     Dosage: 30 UNITS THREE TIMES A DAY
     Route: 065
     Dates: start: 2020, end: 2020
  5. GLIPIZIDE. [Concomitant]
     Active Substance: GLIPIZIDE
     Dosage: UNK
     Route: 065

REACTIONS (8)
  - Incorrect dose administered by device [Unknown]
  - Blindness unilateral [Unknown]
  - Blood glucose increased [Unknown]
  - Product dose omission issue [Unknown]
  - Inappropriate schedule of product administration [Unknown]
  - Glaucoma [Unknown]
  - Device issue [Unknown]
  - Cataract [Unknown]

NARRATIVE: CASE EVENT DATE: 2020
